FAERS Safety Report 5932896-6 (Version None)
Quarter: 2008Q4

REPORT INFORMATION
  Report Type: 
  Country: None (occurrence: None)
  Receive Date: 20081028
  Receipt Date: 20081021
  Transmission Date: 20090506
  Serious: Yes (Death)
  Sender: FDA-Public Use
  Company Number: US-AVENTIS-200817160US

PATIENT
  Sex: Female

DRUGS (2)
  1. LOVENOX [Suspect]
     Indication: PULMONARY EMBOLISM
     Dates: start: 20080101, end: 20080101
  2. LOVENOX [Suspect]
     Dates: start: 20080101, end: 20080101

REACTIONS (1)
  - DEATH [None]
